FAERS Safety Report 10434146 (Version 1)
Quarter: 2014Q3

REPORT INFORMATION
  Report Type: Spontaneous
  Country: US (occurrence: US)
  Receive Date: 20140905
  Receipt Date: 20140905
  Transmission Date: 20150326
  Serious: No
  Sender: FDA-Public Use
  Company Number: US-BAYER-2014-125457

PATIENT
  Age: 70 Year
  Sex: Female
  Weight: 68 kg

DRUGS (4)
  1. BAYER GENUINE ASPIRIN [Suspect]
     Active Substance: ASPIRIN
     Indication: CARDIAC DISORDER
     Dosage: 1 DF, QD
     Route: 048
     Dates: end: 201406
  2. ALEVE [Suspect]
     Active Substance: NAPROXEN SODIUM
     Indication: ARTHRALGIA
     Dosage: 2 DF, QD WITH FOOD
     Route: 048
     Dates: start: 201406
  3. BAYER CHEWABLE LOW DOSE ASPIRIN ORANGE FLAVORED [Suspect]
     Active Substance: ASPIRIN
     Indication: HEART RATE ABNORMAL
     Dosage: 1 DF, OTHER
     Route: 048
     Dates: end: 201406
  4. DYAZIDE [Concomitant]
     Active Substance: HYDROCHLOROTHIAZIDE\TRIAMTERENE

REACTIONS (6)
  - Wrong technique in drug usage process [None]
  - Incorrect drug administration duration [None]
  - Anaemia [None]
  - Expired product administered [None]
  - Intentional product misuse [None]
  - Blood iron decreased [None]

NARRATIVE: CASE EVENT DATE: 201406
